FAERS Safety Report 18848288 (Version 11)
Quarter: 2025Q1

REPORT INFORMATION
  Report Type: Report from Study
  Country: CA (occurrence: CA)
  Receive Date: 20210204
  Receipt Date: 20250228
  Transmission Date: 20250409
  Serious: Yes (Other)
  Sender: TAKEDA
  Company Number: CA-TAKEDA-2018TUS025166

PATIENT
  Age: 59 Year
  Sex: Female

DRUGS (28)
  1. VEDOLIZUMAB [Suspect]
     Active Substance: VEDOLIZUMAB
     Indication: Colitis ulcerative
  2. VEDOLIZUMAB [Suspect]
     Active Substance: VEDOLIZUMAB
  3. VEDOLIZUMAB [Suspect]
     Active Substance: VEDOLIZUMAB
  4. VEDOLIZUMAB [Suspect]
     Active Substance: VEDOLIZUMAB
  5. VEDOLIZUMAB [Suspect]
     Active Substance: VEDOLIZUMAB
  6. VEDOLIZUMAB [Suspect]
     Active Substance: VEDOLIZUMAB
  7. VEDOLIZUMAB [Suspect]
     Active Substance: VEDOLIZUMAB
  8. VEDOLIZUMAB [Suspect]
     Active Substance: VEDOLIZUMAB
     Dosage: 300 MILLIGRAM, Q4WEEKS
     Dates: start: 20241024
  9. VEDOLIZUMAB [Suspect]
     Active Substance: VEDOLIZUMAB
     Dosage: 300 MILLIGRAM, Q4WEEKS
     Dates: end: 20241219
  10. PENTASA [Concomitant]
     Active Substance: MESALAMINE
     Dosage: UNK, QD
     Dates: start: 201601
  11. XARELTO [Concomitant]
     Active Substance: RIVAROXABAN
  12. PREDNISONE [Concomitant]
     Active Substance: PREDNISONE
  13. MESALAMINE [Concomitant]
     Active Substance: MESALAMINE
     Dosage: UNK, BID
  14. MESALAMINE [Concomitant]
     Active Substance: MESALAMINE
     Dosage: 1200 MILLIGRAM, QD
  15. RABEPRAZOLE [Concomitant]
     Active Substance: RABEPRAZOLE
  16. CALCIUM [Concomitant]
     Active Substance: CALCIUM
  17. CALCIUM [Concomitant]
     Active Substance: CALCIUM
  18. Dom Risedronate [Concomitant]
     Dosage: UNK, 1/WEEK
  19. VITAMIN D [Concomitant]
     Active Substance: VITAMIN D NOS
     Dosage: 10000 INTERNATIONAL UNIT, 1/WEEK
  20. ABREVA [Concomitant]
     Active Substance: DOCOSANOL
     Route: 061
  21. VALTREX [Concomitant]
     Active Substance: VALACYCLOVIR HYDROCHLORIDE
  22. MOMETASONE [Concomitant]
     Active Substance: MOMETASONE
  23. FLOVENT [Concomitant]
     Active Substance: FLUTICASONE PROPIONATE
  24. VENTOLIN [Concomitant]
     Active Substance: ALBUTEROL SULFATE
  25. RISEDRONATE SODIUM [Concomitant]
     Active Substance: RISEDRONATE SODIUM
  26. METFORMIN [Concomitant]
     Active Substance: METFORMIN HYDROCHLORIDE
     Dosage: 250 MILLIGRAM, BID
  27. RABEPRAZOLE [Concomitant]
     Active Substance: RABEPRAZOLE
  28. VENLAFAXINE [Concomitant]
     Active Substance: VENLAFAXINE HYDROCHLORIDE
     Dosage: 75 MILLIGRAM, QD

REACTIONS (20)
  - Diverticulitis [Recovered/Resolved]
  - Haematochezia [Unknown]
  - Intestinal obstruction [Not Recovered/Not Resolved]
  - Colitis ulcerative [Unknown]
  - Road traffic accident [Unknown]
  - Post-traumatic neck syndrome [Unknown]
  - Frequent bowel movements [Unknown]
  - Diarrhoea [Not Recovered/Not Resolved]
  - Mucous stools [Unknown]
  - COVID-19 [Recovering/Resolving]
  - Drug ineffective [Unknown]
  - Off label use [Unknown]
  - Dyspnoea [Not Recovered/Not Resolved]
  - Dizziness [Not Recovered/Not Resolved]
  - Rhinorrhoea [Unknown]
  - Constipation [Not Recovered/Not Resolved]
  - Haemorrhoids [Unknown]
  - Fatigue [Not Recovered/Not Resolved]
  - Oropharyngeal pain [Unknown]
  - Cough [Unknown]

NARRATIVE: CASE EVENT DATE: 20180701
